FAERS Safety Report 14744731 (Version 1)
Quarter: 2018Q2

REPORT INFORMATION
  Report Type: Spontaneous
  Country: FR (occurrence: FR)
  Receive Date: 20180411
  Receipt Date: 20180411
  Transmission Date: 20180711
  Serious: Yes (Other)
  Sender: FDA-Public Use
  Company Number: FR-MERCK KGAA-2045508

PATIENT
  Age: 45 Year
  Sex: Female

DRUGS (1)
  1. NOVOTHYROX [Suspect]
     Active Substance: LEVOTHYROXINE SODIUM
     Indication: PRODUCT USED FOR UNKNOWN INDICATION

REACTIONS (30)
  - Respiratory distress [None]
  - Muscle spasms [None]
  - Migraine [None]
  - Myalgia [None]
  - Oedema [None]
  - Fatigue [None]
  - Mood altered [None]
  - Blood thyroid stimulating hormone increased [None]
  - Aggression [None]
  - Alopecia [None]
  - Asocial behaviour [None]
  - Visual impairment [None]
  - Hot flush [None]
  - Acne [None]
  - Stress [None]
  - Diarrhoea [None]
  - Hypersomnia [None]
  - Insomnia [None]
  - Pruritus [None]
  - Arthralgia [None]
  - Contusion [Recovered/Resolved]
  - Hypothyroidism [None]
  - Weight increased [None]
  - Anger [None]
  - Pain [None]
  - Bedridden [None]
  - Dizziness [None]
  - Loss of libido [None]
  - Road traffic accident [None]
  - Injury [None]

NARRATIVE: CASE EVENT DATE: 201704
